FAERS Safety Report 20896929 (Version 6)
Quarter: 2022Q4

REPORT INFORMATION
  Report Type: Report from Study
  Country: US (occurrence: US)
  Receive Date: 20220531
  Receipt Date: 20221116
  Transmission Date: 20230113
  Serious: Yes (Hospitalization, Other)
  Sender: FDA-Public Use
  Company Number: US-OTSUKA-2022_027807

PATIENT
  Age: 64 Year
  Sex: Female
  Weight: 86 kg

DRUGS (3)
  1. CEDAZURIDINE\DECITABINE [Suspect]
     Active Substance: CEDAZURIDINE\DECITABINE
     Indication: Myelodysplastic syndrome
     Dosage: 1 DF (35-100 MG), QD (1-5 DAY) OF EACH 28-DAY CYCLE
     Route: 048
     Dates: start: 20220511
  2. CEDAZURIDINE\DECITABINE [Suspect]
     Active Substance: CEDAZURIDINE\DECITABINE
     Dosage: 1 DF (35-100 MG), QD (1-5 DAY) OF EACH 28-DAY CYCLE; ON FOR 5 DAYS OFF FOR 23 DAYS)
     Route: 048
  3. CEDAZURIDINE\DECITABINE [Suspect]
     Active Substance: CEDAZURIDINE\DECITABINE
     Dosage: UNK
     Route: 065
     Dates: start: 20221005

REACTIONS (18)
  - Thrombosis [Unknown]
  - Neoplasm malignant [Unknown]
  - Dyspnoea [Unknown]
  - Cellulitis [Unknown]
  - Haemoglobin decreased [Unknown]
  - Platelet count decreased [Unknown]
  - Blood potassium decreased [Unknown]
  - Skin mass [Unknown]
  - Pruritus [Unknown]
  - Feeling abnormal [Unknown]
  - Peripheral swelling [Unknown]
  - Contusion [Unknown]
  - Petechiae [Unknown]
  - Vulvovaginal mycotic infection [Unknown]
  - Nausea [Unknown]
  - Decreased appetite [Unknown]
  - Diarrhoea [Unknown]
  - Product use issue [Unknown]

NARRATIVE: CASE EVENT DATE: 20220821
